FAERS Safety Report 8414385-2 (Version None)
Quarter: 2012Q2

REPORT INFORMATION
  Report Type: 
  Country: None (occurrence: None)
  Receive Date: 20120605
  Receipt Date: 20120517
  Transmission Date: 20120825
  Serious: No
  Sender: FDA-Public Use
  Company Number: US-ASTRAZENECA-2012SE34361

PATIENT
  Age: 64 Year
  Sex: Female
  Weight: 72.6 kg

DRUGS (3)
  1. HIGH BLOOD PRESSURE MEDICINES [Concomitant]
  2. PULMICORT FLEXHALER [Suspect]
     Indication: BRONCHIECTASIS
     Dosage: 180 MCG, EVERY 12 HOURS
     Route: 055
     Dates: start: 20100101
  3. PULMICORT FLEXHALER [Suspect]
     Indication: ASTHMA
     Dosage: 180 MCG, EVERY 12 HOURS
     Route: 055
     Dates: start: 20100101

REACTIONS (3)
  - BRONCHOSPASM [None]
  - OFF LABEL USE [None]
  - NECK PAIN [None]
